FAERS Safety Report 4278953-4 (Version None)
Quarter: 2004Q1

REPORT INFORMATION
  Report Type: 
  Country: None (occurrence: None)
  Receive Date: 20040126
  Receipt Date: 20031124
  Transmission Date: 20041129
  Serious: Yes (Other)
  Sender: FDA-Public Use
  Company Number: CH-ROCHE-352559

PATIENT
  Age: 46 Year
  Sex: Male

DRUGS (11)
  1. PEG-INTERFERON ALFA 2A (RO 25-8310) [Suspect]
     Dosage: FORMULATION REPORTED AS PRE-FILLED SYRINGE.
     Route: 058
     Dates: start: 20030227, end: 20031023
  2. RIBAVIRIN [Suspect]
     Dosage: TAKEN IN 2 DIVIDED DOSES 2 TABLETS IN THE MORNING AND 2 TABLETS IN THE EVENING.
     Route: 048
     Dates: start: 20030227, end: 20031023
  3. MYCOPHENOLATE MOFETIL [Suspect]
     Indication: DRUG USE FOR UNKNOWN INDICATION
     Route: 065
     Dates: start: 20010410, end: 20031016
  4. MYCOPHENOLATE MOFETIL [Suspect]
     Route: 065
     Dates: start: 20031023
  5. MYCOPHENOLATE MOFETIL [Suspect]
     Route: 065
     Dates: start: 20031106
  6. FK506 [Suspect]
     Indication: DRUG USE FOR UNKNOWN INDICATION
     Route: 065
     Dates: start: 20010410, end: 20011016
  7. FK506 [Suspect]
     Route: 065
     Dates: start: 20031023
  8. FK506 [Suspect]
     Route: 065
     Dates: start: 20031112
  9. ENALAPRIL MALEATE [Concomitant]
     Dates: start: 20020627
  10. HUMALOG [Concomitant]
     Dates: start: 20010110
  11. INSULIN LENTE [Concomitant]
     Dates: start: 20010110

REACTIONS (12)
  - ALANINE AMINOTRANSFERASE INCREASED [None]
  - ASPARTATE AMINOTRANSFERASE INCREASED [None]
  - BLOOD ALKALINE PHOSPHATASE INCREASED [None]
  - DRUG LEVEL INCREASED [None]
  - GAMMA-GLUTAMYLTRANSFERASE INCREASED [None]
  - GASTROENTERITIS CRYPTOSPORIDIAL [None]
  - HAEMOGLOBIN DECREASED [None]
  - HEPATITIS C RNA POSITIVE [None]
  - LYMPHOCYTE COUNT INCREASED [None]
  - OPPORTUNISTIC INFECTION [None]
  - WEIGHT INCREASED [None]
  - WHITE BLOOD CELL COUNT DECREASED [None]
